FAERS Safety Report 9329833 (Version 1)
Quarter: 2013Q2

REPORT INFORMATION
  Report Type: Spontaneous
  Country: BE (occurrence: BE)
  Receive Date: 20130604
  Receipt Date: 20130604
  Transmission Date: 20140414
  Serious: Yes (Hospitalization)
  Sender: FDA-Public Use
  Company Number: PHHY2013BE055417

PATIENT
  Age: 80 Year
  Sex: Female

DRUGS (1)
  1. GLIVEC [Suspect]
     Indication: GASTROINTESTINAL STROMAL TUMOUR
     Dosage: 400 MG, DAILY
     Route: 048
     Dates: start: 201210, end: 20130513

REACTIONS (3)
  - Fall [Recovered/Resolved]
  - Haemolytic anaemia [Not Recovered/Not Resolved]
  - Syncope [Recovered/Resolved]
